FAERS Safety Report 9694971 (Version 2)
Quarter: 2013Q4

REPORT INFORMATION
  Report Type: Spontaneous
  Country: US (occurrence: US)
  Receive Date: 20131119
  Receipt Date: 20131211
  Transmission Date: 20140711
  Serious: Yes (Other)
  Sender: FDA-Public Use
  Company Number: US-JNJFOC-20131106255

PATIENT
  Sex: Female
  Weight: 46.72 kg

DRUGS (14)
  1. XARELTO [Suspect]
     Indication: CEREBROVASCULAR ACCIDENT PROPHYLAXIS
     Dosage: QPM
     Route: 048
  2. XARELTO [Suspect]
     Indication: ATRIAL FIBRILLATION
     Dosage: QPM
     Route: 048
  3. LEXAPRO [Concomitant]
     Indication: DEPRESSION
     Route: 065
  4. ADVAIR DISKUS [Concomitant]
     Dosage: 100MCG-50MCG, 1 PUFF (S) QAM
     Route: 055
  5. NASONEX [Concomitant]
     Indication: SEASONAL ALLERGY
     Dosage: 50MCG/INH SPRAY 2 SPRAY (S), QAM
     Route: 045
  6. FOLTX [Concomitant]
     Route: 048
  7. FISH OIL [Concomitant]
     Indication: HYPERCHOLESTEROLAEMIA
     Route: 048
  8. DILTIAZEM HYDROCHLORIDE [Concomitant]
     Indication: BLOOD PRESSURE
     Route: 048
  9. CALTRATE + D [Concomitant]
     Indication: OSTEOPOROSIS POSTMENOPAUSAL
     Dosage: WITH D 600MG-400INTL UNITS
     Route: 048
  10. VYTORIN [Concomitant]
     Indication: HYPERCHOLESTEROLAEMIA
     Dosage: 10/40
     Route: 048
  11. ACTONEL [Concomitant]
     Indication: OSTEOPOROSIS POSTMENOPAUSAL
     Dosage: 10/40
     Route: 048
  12. ASPIRIN [Concomitant]
     Route: 065
  13. NIASPAN [Concomitant]
     Dosage: AT BED TIME
     Route: 065
  14. MAGNESIUM OXIDE [Concomitant]
     Dosage: 2 TABLETS IN THE AM AND 1 TABLET IN THE PM
     Route: 065

REACTIONS (4)
  - Chest pain [Recovering/Resolving]
  - Cellulitis [Recovering/Resolving]
  - Macular degeneration [Unknown]
  - Dyspnoea exertional [Recovering/Resolving]
